FAERS Safety Report 16694309 (Version 3)
Quarter: 2019Q4

REPORT INFORMATION
  Report Type: Spontaneous
  Country: US (occurrence: US)
  Receive Date: 20190812
  Receipt Date: 20191014
  Transmission Date: 20200122
  Serious: Yes (Hospitalization)
  Sender: FDA-Public Use
  Company Number: US-ELI_LILLY_AND_COMPANY-US201908000793

PATIENT
  Sex: Female

DRUGS (20)
  1. HUMALOG [Suspect]
     Active Substance: INSULIN LISPRO
     Dosage: 20 U, BID
     Route: 058
  2. HUMALOG [Suspect]
     Active Substance: INSULIN LISPRO
     Dosage: 30 U, EACH MORNING
     Route: 058
  3. HUMALOG [Suspect]
     Active Substance: INSULIN LISPRO
     Dosage: 30 U, EACH MORNING
     Route: 058
     Dates: end: 20190624
  4. HUMALOG [Suspect]
     Active Substance: INSULIN LISPRO
     Dosage: 20 U, BID
     Route: 058
  5. HUMALOG [Suspect]
     Active Substance: INSULIN LISPRO
     Dosage: 20 U, BID
     Route: 058
  6. HUMALOG [Suspect]
     Active Substance: INSULIN LISPRO
     Dosage: 20 U, BID
     Route: 058
  7. HUMALOG [Suspect]
     Active Substance: INSULIN LISPRO
     Dosage: 20 U, BID
     Route: 058
  8. HUMALOG [Suspect]
     Active Substance: INSULIN LISPRO
     Dosage: 20 U, BID
     Route: 058
  9. HUMALOG [Suspect]
     Active Substance: INSULIN LISPRO
     Dosage: 30 U, EACH MORNING
     Route: 058
  10. HUMALOG [Suspect]
     Active Substance: INSULIN LISPRO
     Dosage: 30 U, EACH MORNING
     Route: 058
  11. HUMALOG [Suspect]
     Active Substance: INSULIN LISPRO
     Dosage: 30 U, EACH MORNING
     Route: 058
  12. HUMALOG [Suspect]
     Active Substance: INSULIN LISPRO
     Dosage: 20 U, BID
     Route: 058
     Dates: end: 20190624
  13. HUMALOG [Suspect]
     Active Substance: INSULIN LISPRO
     Indication: TYPE 2 DIABETES MELLITUS
     Dosage: 30 U, EACH MORNING
     Route: 058
  14. HUMALOG [Suspect]
     Active Substance: INSULIN LISPRO
     Dosage: 30 U, EACH MORNING
     Route: 058
  15. HUMALOG [Suspect]
     Active Substance: INSULIN LISPRO
     Dosage: 30 U, EACH MORNING
     Route: 058
  16. HUMALOG [Suspect]
     Active Substance: INSULIN LISPRO
     Dosage: 30 U, EACH MORNING
     Route: 058
  17. HUMALOG [Suspect]
     Active Substance: INSULIN LISPRO
     Dosage: 20 U, BID
     Route: 058
  18. HUMALOG [Suspect]
     Active Substance: INSULIN LISPRO
     Dosage: 30 U, EACH MORNING
     Route: 058
  19. HUMALOG [Suspect]
     Active Substance: INSULIN LISPRO
     Dosage: 20 U, BID
     Route: 058
  20. HUMALOG [Suspect]
     Active Substance: INSULIN LISPRO
     Dosage: 20 U, BID
     Route: 058

REACTIONS (7)
  - Depressed mood [Unknown]
  - Drug ineffective [Unknown]
  - Transient ischaemic attack [Unknown]
  - Blood glucose increased [Unknown]
  - Condition aggravated [Unknown]
  - Malaise [Unknown]
  - Glycosylated haemoglobin increased [Unknown]

NARRATIVE: CASE EVENT DATE: 2019
